FAERS Safety Report 11969729 (Version 1)
Quarter: 2016Q1

REPORT INFORMATION
  Report Type: Spontaneous
  Country: US (occurrence: US)
  Receive Date: 20160128
  Receipt Date: 20160128
  Transmission Date: 20160526
  Serious: No
  Sender: FDA-Public Use
  Company Number: US-BIOGEN-2016BI00178792

PATIENT
  Sex: Female

DRUGS (2)
  1. AVONEX [Suspect]
     Active Substance: INTERFERON BETA-1A
     Route: 030
     Dates: start: 20110111, end: 20110312
  2. AVONEX [Suspect]
     Active Substance: INTERFERON BETA-1A
     Indication: MULTIPLE SCLEROSIS
     Route: 030
     Dates: start: 19990101, end: 19990201

REACTIONS (6)
  - Malaise [Unknown]
  - Soliloquy [Unknown]
  - Hallucination, auditory [Unknown]
  - Soft tissue injury [Unknown]
  - Feeling abnormal [Unknown]
  - Pain [Unknown]

NARRATIVE: CASE EVENT DATE: 1999
